FAERS Safety Report 7205507-X (Version None)
Quarter: 2010Q4

REPORT INFORMATION
  Report Type: 
  Country: None (occurrence: None)
  Receive Date: 20101231
  Receipt Date: 20101228
  Transmission Date: 20110411
  Serious: Yes (Death, Life-Threatening, Other)
  Sender: FDA-Public Use
  Company Number: PHHY2010JP46759

PATIENT
  Sex: Female
  Weight: 68 kg

DRUGS (9)
  1. SANDIMMUNE [Suspect]
     Indication: SYSTEMIC LUPUS ERYTHEMATOSUS
     Dosage: 50 MG, BID
     Route: 041
     Dates: start: 20100611, end: 20100615
  2. SANDIMMUNE [Suspect]
     Dosage: 40 MG, BID
     Route: 041
     Dates: start: 20100616, end: 20100627
  3. SANDIMMUNE [Suspect]
     Dosage: 20 MG DAILY
     Route: 041
     Dates: start: 20100628, end: 20100628
  4. SANDIMMUNE [Suspect]
     Dosage: 20 MG, BID
     Route: 041
     Dates: start: 20100629, end: 20100701
  5. NEORAL [Suspect]
     Indication: THROMBOCYTOPENIA
     Dosage: UNK
     Route: 048
     Dates: start: 20100507, end: 20100609
  6. NEORAL [Suspect]
     Indication: SYSTEMIC LUPUS ERYTHEMATOSUS
  7. TAKEPRON [Suspect]
     Indication: GASTRIC ULCER PERFORATION
     Dosage: 60 MG, BID
     Route: 042
     Dates: start: 20100611, end: 20100707
  8. PREDONINE [Concomitant]
     Indication: SYSTEMIC LUPUS ERYTHEMATOSUS
     Dosage: 35 MG
     Route: 042
     Dates: start: 20100610
  9. PREDNISOLONE [Concomitant]
     Indication: SYSTEMIC LUPUS ERYTHEMATOSUS
     Dosage: UNK
     Route: 048
     Dates: start: 19801201, end: 20100609

REACTIONS (11)
  - ALANINE AMINOTRANSFERASE INCREASED [None]
  - ASPARTATE AMINOTRANSFERASE INCREASED [None]
  - BILIRUBIN CONJUGATED [None]
  - BLOOD BILIRUBIN INCREASED [None]
  - BLOOD POTASSIUM DECREASED [None]
  - BLOOD PRESSURE DECREASED [None]
  - GASTRIC ULCER PERFORATION [None]
  - GASTROINTESTINAL HAEMORRHAGE [None]
  - JAUNDICE [None]
  - LIVER DISORDER [None]
  - RESPIRATORY ARREST [None]
